FAERS Safety Report 12259369 (Version 1)
Quarter: 2016Q2

REPORT INFORMATION
  Report Type: Report from Study
  Country: AU (occurrence: AU)
  Receive Date: 20160412
  Receipt Date: 20160412
  Transmission Date: 20160815
  Serious: Yes (Hospitalization)
  Sender: FDA-Public Use
  Company Number: AU-ABBVIE-16P-008-1601378-00

PATIENT
  Age: 70 Year
  Sex: Male

DRUGS (1)
  1. DUODOPA [Suspect]
     Active Substance: CARBIDOPA\LEVODOPA
     Indication: PARKINSON^S DISEASE
     Dosage: 16 HOURLY INFUSION/ EXTRA DOSE
     Route: 050
     Dates: start: 20150415

REACTIONS (4)
  - Gait disturbance [Unknown]
  - Fall [Unknown]
  - Fall [Unknown]
  - Fall [Unknown]

NARRATIVE: CASE EVENT DATE: 201512
